FAERS Safety Report 11150171 (Version 1)
Quarter: 2015Q2

REPORT INFORMATION
  Report Type: Spontaneous
  Country: US (occurrence: US)
  Receive Date: 20150529
  Receipt Date: 20150529
  Transmission Date: 20150821
  Serious: Yes (Other)
  Sender: FDA-Public Use
  Company Number: US-ASTRAZENECA-2015SE52227

PATIENT
  Sex: Male

DRUGS (1)
  1. ARIMIDEX [Suspect]
     Active Substance: ANASTROZOLE
     Indication: PRODUCT USED FOR UNKNOWN INDICATION
     Dosage: 0.3 MG TO 1 MG, DAILY
     Route: 048
     Dates: start: 201305

REACTIONS (2)
  - Renal failure [Unknown]
  - Disease recurrence [None]
